FAERS Safety Report 9683783 (Version 2)
Quarter: 2014Q1

REPORT INFORMATION
  Report Type: Spontaneous
  Country: US (occurrence: US)
  Receive Date: 20131112
  Receipt Date: 20140116
  Transmission Date: 20141002
  Serious: Yes (Other)
  Sender: FDA-Public Use
  Company Number: US-BRISTOL-MYERS SQUIBB COMPANY-19784263

PATIENT
  Age: 54 Year
  Sex: Female
  Weight: 52.15 kg

DRUGS (4)
  1. ONGLYZA TABS 5 MG [Suspect]
     Indication: TYPE 2 DIABETES MELLITUS
     Route: 048
     Dates: start: 201311
  2. AMARYL [Suspect]
  3. VITAMINS [Concomitant]
  4. TOPROL [Concomitant]

REACTIONS (4)
  - Eye haemorrhage [Unknown]
  - Dyspnoea [Unknown]
  - Dysphonia [Unknown]
  - Nasopharyngitis [Unknown]
